FAERS Safety Report 10704923 (Version 4)
Quarter: 2015Q1

REPORT INFORMATION
  Report Type: Report from Study
  Country: US (occurrence: US)
  Receive Date: 20150112
  Receipt Date: 20150123
  Transmission Date: 20150721
  Serious: Yes (Hospitalization)
  Sender: FDA-Public Use
  Company Number: US-BRISTOL-MYERS SQUIBB COMPANY-20542783

PATIENT
  Age: 64 Year
  Sex: Male
  Weight: 125 kg

DRUGS (24)
  1. ADVIL (MEFENAMIC ACID) [Concomitant]
     Active Substance: MEFENAMIC ACID
  2. CALCIUM WITH VITAMIN D             /00944201/ [Concomitant]
     Active Substance: CALCIUM\VITAMIN D
  3. IMDUR [Concomitant]
     Active Substance: ISOSORBIDE MONONITRATE
  4. BUMEX [Concomitant]
     Active Substance: BUMETANIDE
  5. LASIX [Concomitant]
     Active Substance: FUROSEMIDE
  6. VANCOMYCIN [Concomitant]
     Active Substance: VANCOMYCIN
  7. RAMIPRIL. [Concomitant]
     Active Substance: RAMIPRIL
  8. SOLU-MEDROL [Concomitant]
     Active Substance: METHYLPREDNISOLONE SODIUM SUCCINATE
  9. XGEVA [Concomitant]
     Active Substance: DENOSUMAB
  10. NIVOLUMAB [Suspect]
     Active Substance: NIVOLUMAB
     Indication: RENAL CELL CARCINOMA
     Dosage: LAST DOSE: 26FEB2014
     Route: 042
     Dates: start: 20131204, end: 20140226
  11. AMLODIPINE [Concomitant]
     Active Substance: AMLODIPINE BESYLATE
  12. LOPRESSOR [Concomitant]
     Active Substance: METOPROLOL TARTRATE
  13. MULTIVITAMIN                       /00097801/ [Concomitant]
     Active Substance: VITAMINS
  14. OXYCONTIN [Concomitant]
     Active Substance: OXYCODONE HYDROCHLORIDE
  15. PLAVIX [Concomitant]
     Active Substance: CLOPIDOGREL BISULFATE
  16. ASPIRIN                            /00002701/ [Concomitant]
     Active Substance: ASPIRIN
  17. BACLOFEN. [Concomitant]
     Active Substance: BACLOFEN
  18. PREDNISONE. [Concomitant]
     Active Substance: PREDNISONE
  19. KAYEXALATE [Concomitant]
     Active Substance: SODIUM POLYSTYRENE SULFONATE
  20. OXYCODONE [Concomitant]
     Active Substance: OXYCODONE
  21. ATOVAQUONE. [Concomitant]
     Active Substance: ATOVAQUONE
  22. FISH OIL [Concomitant]
     Active Substance: FISH OIL
  23. LEVOFLAXIN [Concomitant]
  24. OSTEO BI-FLEX                      /01431201/ [Concomitant]

REACTIONS (1)
  - Pneumonitis [Recovered/Resolved]

NARRATIVE: CASE EVENT DATE: 20140312
